FAERS Safety Report 4816005-2 (Version None)
Quarter: 2005Q4

REPORT INFORMATION
  Report Type: 
  Country: None (occurrence: None)
  Receive Date: 20051026
  Receipt Date: 20051020
  Transmission Date: 20060501
  Serious: Yes (Hospitalization)
  Sender: FDA-Public Use
  Company Number: TAP2005Q01277

PATIENT
  Age: 70 Year
  Sex: Male
  Weight: 115.6672 kg

DRUGS (2)
  1. LUPRON DEPOT-4 [Suspect]
     Indication: PROSTATE CANCER
     Dosage: 30 MG, ONCE, INTRAMUSCULAR
     Route: 030
     Dates: start: 20050125, end: 20050125
  2. HYTRIN [Concomitant]

REACTIONS (6)
  - ANOREXIA [None]
  - FALL [None]
  - HEMIPARESIS [None]
  - HOT FLUSH [None]
  - TRANSIENT ISCHAEMIC ATTACK [None]
  - VOMITING [None]
